FAERS Safety Report 8107293-8 (Version None)
Quarter: 2011Q4

REPORT INFORMATION
  Report Type: 
  Country: None (occurrence: None)
  Receive Date: 20111227
  Receipt Date: 20111129
  Transmission Date: 20120403
  Serious: Yes (Other)
  Sender: FDA-Public Use
  Company Number: PHEH2011US05448

PATIENT
  Age: 28 Year
  Sex: Male

DRUGS (5)
  1. FAMOTIDINE [Concomitant]
  2. FIORECET (BUTALBITAL, CAFFEINE, PARACETAMOL) [Concomitant]
  3. GILENYA [Suspect]
     Indication: MULTIPLE SCLEROSIS
     Dosage: 0.5 MG, QD, ORAL
     Route: 048
     Dates: start: 20110926
  4. TRAZODONE HCL [Concomitant]
  5. PERCOCET (OXYDONE HYDROCHLORIDE, PARACETAMOL) [Concomitant]

REACTIONS (2)
  - MULTIPLE SCLEROSIS RELAPSE [None]
  - BACK PAIN [None]
